FAERS Safety Report 9508894 (Version 2)
Quarter: 2013Q3

REPORT INFORMATION
  Report Type: Spontaneous
  Country: US (occurrence: US)
  Receive Date: 20130909
  Receipt Date: 20130909
  Transmission Date: 20140515
  Serious: No
  Sender: FDA-Public Use
  Company Number: US-BRISTOL-MYERS SQUIBB COMPANY-19052463

PATIENT
  Age: 26 Year
  Sex: Male
  Weight: 81.63 kg

DRUGS (1)
  1. ABILIFY INJECTION [Suspect]
     Dosage: REGI 2:400MG;IM;15MAY2013?REGI 3:400MG;IM;14JUN2013.
     Route: 030
     Dates: start: 20130417

REACTIONS (1)
  - Incorrect dose administered [Recovered/Resolved]
